FAERS Safety Report 6100148-X (Version None)
Quarter: 2009Q1

REPORT INFORMATION
  Report Type: 
  Country: None (occurrence: None)
  Receive Date: 20090303
  Receipt Date: 20090220
  Transmission Date: 20090719
  Serious: Yes (Other)
  Sender: FDA-Public Use
  Company Number: US-JNJFOC-20090205251

PATIENT
  Sex: Female
  Weight: 75.2 kg

DRUGS (11)
  1. DORIBAX [Suspect]
     Indication: SEPTIC SHOCK
     Route: 041
  2. PEPSID [Concomitant]
     Route: 048
  3. FLAGYL [Concomitant]
     Route: 048
  4. DILAUDID [Concomitant]
  5. ZOFRAN [Concomitant]
     Indication: NAUSEA
  6. HEPARIN [Concomitant]
     Route: 042
  7. VANCOMYCIN HCL [Concomitant]
     Indication: STAPHYLOCOCCAL INFECTION
     Route: 042
  8. LASIX [Concomitant]
     Route: 042
  9. INSULIN [Concomitant]
     Indication: DIABETES MELLITUS
  10. DUONEBULIZER [Concomitant]
     Route: 055
  11. HYDROCORTISONE [Concomitant]
     Route: 042

REACTIONS (2)
  - BRADYCARDIA [None]
  - CARDIAC FAILURE [None]
